FAERS Safety Report 24731165 (Version 2)
Quarter: 2024Q4

REPORT INFORMATION
  Report Type: Spontaneous
  Country: GB (occurrence: GB)
  Receive Date: 20241213
  Receipt Date: 20241224
  Transmission Date: 20250114
  Serious: Yes (Other)
  Sender: RANBAXY
  Company Number: GB-SUN PHARMACEUTICAL INDUSTRIES LTD-2024RR-483687

PATIENT
  Age: 46 Year
  Sex: Male

DRUGS (4)
  1. DOXORUBICIN [Suspect]
     Active Substance: DOXORUBICIN
     Indication: Myxofibrosarcoma
     Dosage: SIX CYCLES
     Route: 065
     Dates: end: 202104
  2. GEMCITABINE [Suspect]
     Active Substance: GEMCITABINE
     Indication: Myxofibrosarcoma
     Dosage: TWO CYCLES
     Route: 065
     Dates: start: 2022
  3. IFOSFAMIDE [Suspect]
     Active Substance: IFOSFAMIDE
     Indication: Myxofibrosarcoma
     Dosage: UNK
     Route: 065
  4. DACARBAZINE [Suspect]
     Active Substance: DACARBAZINE
     Indication: Myxofibrosarcoma
     Dosage: UNK
     Route: 065
     Dates: start: 2022

REACTIONS (2)
  - Disease progression [Unknown]
  - Disease recurrence [Unknown]
